FAERS Safety Report 7962216-7 (Version None)
Quarter: 2011Q4

REPORT INFORMATION
  Report Type: 
  Country: None (occurrence: None)
  Receive Date: 20111207
  Receipt Date: 20111129
  Transmission Date: 20120403
  Serious: Yes (Other)
  Sender: FDA-Public Use
  Company Number: PHHY2011BR105119

PATIENT
  Age: 58 Year
  Sex: Female

DRUGS (1)
  1. FORMOTEROL FUMARATE [Suspect]
     Indication: CHRONIC OBSTRUCTIVE PULMONARY DISEASE
     Dosage: 2 INHALATION DAILY 1 DURING THE MORNING AND OTHER AT NIGHT

REACTIONS (14)
  - ABDOMINAL DISTENSION [None]
  - GASTROINTESTINAL HYPOMOTILITY [None]
  - SWELLING FACE [None]
  - HYPERSENSITIVITY [None]
  - WHEEZING [None]
  - SWELLING [None]
  - FLATULENCE [None]
  - DYSPNOEA [None]
  - LARYNGOSPASM [None]
  - COUGH [None]
  - FATIGUE [None]
  - CHEST PAIN [None]
  - OEDEMA PERIPHERAL [None]
  - OEDEMA [None]
